FAERS Safety Report 6208931-7 (Version None)
Quarter: 2009Q2

REPORT INFORMATION
  Report Type: 
  Country: None (occurrence: None)
  Receive Date: 20090529
  Receipt Date: 20090521
  Transmission Date: 20091009
  Serious: Yes (Other)
  Sender: FDA-Public Use
  Company Number: GB-MERCK-0904GBR00107

PATIENT
  Age: 52 Year
  Sex: Female
  Weight: 109 kg

DRUGS (2)
  1. JANUVIA [Suspect]
     Indication: TYPE 2 DIABETES MELLITUS
     Route: 048
     Dates: start: 20090303, end: 20090327
  2. METFORMIN [Concomitant]
     Indication: HYPERGLYCAEMIA
     Route: 048
     Dates: start: 20060201

REACTIONS (5)
  - ARTHRALGIA [None]
  - DYSPNOEA [None]
  - HEADACHE [None]
  - INFLUENZA LIKE ILLNESS [None]
  - MYALGIA [None]
